FAERS Safety Report 8501902-7 (Version None)
Quarter: 2012Q3

REPORT INFORMATION
  Report Type: 
  Country: None (occurrence: None)
  Receive Date: 20120711
  Receipt Date: 20120703
  Transmission Date: 20120928
  Serious: Yes (Hospitalization)
  Sender: FDA-Public Use
  Company Number: PHHY2012FR058723

PATIENT
  Sex: Female

DRUGS (7)
  1. SECTRAL [Concomitant]
     Dosage: 200 MG,
     Route: 048
  2. FEMARA [Suspect]
     Indication: BREAST CANCER METASTATIC
     Dosage: 1 DF, DAILY
     Dates: start: 20120607
  3. STABLON [Suspect]
     Indication: DEPRESSION
     Dosage: 1 DF
     Route: 048
     Dates: start: 20120607, end: 20120608
  4. TAXOL [Suspect]
     Indication: BREAST CANCER METASTATIC
     Dosage: 154 MG PER WEEK
     Dates: start: 20120607
  5. TAXOL [Suspect]
     Dosage: 154 MG PER WEEK
     Dates: start: 20120614
  6. LORAZEPAM [Suspect]
     Indication: ANXIETY
     Dosage: 1 MG (ONE TABLET DAILY)
     Route: 048
  7. LORAZEPAM [Suspect]
     Indication: DEPRESSION

REACTIONS (5)
  - AFFECTIVE DISORDER [None]
  - GRAND MAL CONVULSION [None]
  - IRRITABILITY [None]
  - POSTICTAL STATE [None]
  - COMA [None]
